FAERS Safety Report 11340775 (Version 1)
Quarter: 2015Q3

REPORT INFORMATION
  Report Type: Spontaneous
  Country: US (occurrence: None)
  Receive Date: 20150803
  Receipt Date: 20150803
  Transmission Date: 20151125
  Serious: No
  Sender: FDA-Public Use
  Company Number: None

PATIENT
  Age: 43 Year
  Sex: Female
  Weight: 112 kg

DRUGS (9)
  1. LEVOTHYROXINE. [Concomitant]
     Active Substance: LEVOTHYROXINE
  2. AMBIEN [Concomitant]
     Active Substance: ZOLPIDEM TARTRATE
  3. SIMVASTATIN. [Concomitant]
     Active Substance: SIMVASTATIN
  4. SERTRALINE [Concomitant]
     Active Substance: SERTRALINE HYDROCHLORIDE
  5. XANAX XR [Concomitant]
     Active Substance: ALPRAZOLAM
  6. LOPERAMIDE [Concomitant]
     Active Substance: LOPERAMIDE
  7. RAMIPRIL. [Concomitant]
     Active Substance: RAMIPRIL
  8. ACETAMINOPHEN. [Concomitant]
     Active Substance: ACETAMINOPHEN
  9. MIRENA [Suspect]
     Active Substance: LEVONORGESTREL
     Dosage: ONCE EVERY 5 YEAR
     Route: 067
     Dates: start: 20130409, end: 20150518

REACTIONS (3)
  - Device expulsion [None]
  - Vaginal haemorrhage [None]
  - Hair growth abnormal [None]

NARRATIVE: CASE EVENT DATE: 20150518
